FAERS Safety Report 25987911 (Version 1)
Quarter: 2025Q4

REPORT INFORMATION
  Report Type: Other
  Country: US (occurrence: US)
  Receive Date: 20251103
  Receipt Date: 20251103
  Transmission Date: 20260118
  Serious: Yes (Hospitalization, Other)
  Sender: SQUARE PHARMACEUTICALS
  Company Number: US-Square Pharmaceuticals PLC-000075

PATIENT
  Age: 8 Year
  Sex: Male

DRUGS (3)
  1. ARIPIPRAZOLE [Suspect]
     Active Substance: ARIPIPRAZOLE
     Indication: Accidental exposure to product
  2. CLONIDINE [Concomitant]
     Active Substance: CLONIDINE
     Indication: Sleep disorder
  3. ARIPIPRAZOLE [Suspect]
     Active Substance: ARIPIPRAZOLE
     Indication: Behavioural therapy

REACTIONS (4)
  - Priapism [Recovering/Resolving]
  - Accidental exposure to product [Unknown]
  - Dystonia [Recovering/Resolving]
  - Extrapyramidal disorder [Unknown]
